FAERS Safety Report 5155270-1 (Version None)
Quarter: 2006Q4

REPORT INFORMATION
  Report Type: 
  Country: None (occurrence: None)
  Receive Date: 20061121
  Receipt Date: 20061027
  Transmission Date: 20070319
  Serious: Yes (Hospitalization)
  Sender: FDA-Public Use
  Company Number: US-ROCHE-469716

PATIENT
  Age: 66 Year
  Sex: Female
  Weight: 72.6 kg

DRUGS (5)
  1. XELODA [Suspect]
     Route: 048
     Dates: start: 20061004, end: 20061020
  2. ADVAIR DISKUS 100/50 [Concomitant]
  3. SYNTHROID [Concomitant]
  4. COMPAZINE [Concomitant]
  5. DYAZIDE [Concomitant]
     Dosage: REPORTED AS DIAZIDE.

REACTIONS (8)
  - APHAGIA [None]
  - ASTHENIA [None]
  - DEHYDRATION [None]
  - DIARRHOEA [None]
  - DYSPHAGIA [None]
  - NAUSEA [None]
  - ODYNOPHAGIA [None]
  - STOMATITIS [None]
